FAERS Safety Report 19572821 (Version 1)
Quarter: 2021Q3

REPORT INFORMATION
  Report Type: Spontaneous
  Country: FR (occurrence: FR)
  Receive Date: 20210716
  Receipt Date: 20210716
  Transmission Date: 20211014
  Serious: Yes (Life-Threatening)
  Sender: FDA-Public Use
  Company Number: FR-TEVA-2021-FR-1932203

PATIENT
  Age: 75 Year
  Sex: Male
  Weight: 69 kg

DRUGS (7)
  1. ASPEGIC NOURRISSONS 100 MG, POUDRE POUR SOLUTION BUVABLE EN SACHET?DOS [Concomitant]
     Dosage: IN SACHET?DOSE, THERAPY START DATE : ASKU, UNIT DOSE : 1 DOSAGE FORMS
     Route: 048
  2. PANTOPRAZOLE [Concomitant]
     Active Substance: PANTOPRAZOLE
     Dosage: 40 MG, THERAPY START DATE : ASKU
     Route: 048
  3. CANDESARTAN CILEXETIL. [Suspect]
     Active Substance: CANDESARTAN CILEXETIL
     Indication: HYPERTENSION
     Dosage: UNIT DOSE : 8 MG, THERAPY START DATE : ASKU
     Route: 048
     Dates: end: 20210612
  4. TAHOR [Concomitant]
     Active Substance: ATORVASTATIN CALCIUM
     Dosage: STRENGTH : 40 MG, THERAPY START DATE : ASKU, UNIT DOSE : 1 DOSAGE FORMS
     Route: 048
  5. BISOCE 2,5 MG, COMPRIME PELLICULE SECABLE [Concomitant]
     Active Substance: BISOPROLOL FUMARATE
     Dosage: UNIT DOSE : 1 DOSAGE FORMS , THERAPY START DATE : ASKU, STRENGTH  : 2.5 MG
     Route: 048
  6. ALLOPURINOL. [Concomitant]
     Active Substance: ALLOPURINOL
     Dosage: 100 MG, THERAPY START DATE : ASKU
     Route: 048
  7. ENALAPRIL (MALEATE D^) [Suspect]
     Active Substance: ENALAPRIL MALEATE
     Indication: HYPERTENSION
     Dosage: THERAPY START DATE : ASKU, UNIT DOSE : 20 MG
     Route: 048
     Dates: end: 20210612

REACTIONS (2)
  - Hypovolaemic shock [Recovered/Resolved]
  - Acute kidney injury [Recovered/Resolved]

NARRATIVE: CASE EVENT DATE: 20210612
